FAERS Safety Report 18341799 (Version 2)
Quarter: 2020Q4

REPORT INFORMATION
  Report Type: Report from Study
  Country: None (occurrence: SE)
  Receive Date: 20201005
  Receipt Date: 20201009
  Transmission Date: 20210113
  Serious: Yes (Death, Hospitalization)
  Sender: FDA-Public Use
  Company Number: SE-ABBVIE-20K-150-3593051-00

PATIENT
  Age: 81 Year
  Sex: Male

DRUGS (2)
  1. DUODOPA [Suspect]
     Active Substance: CARBIDOPA\LEVODOPA
     Indication: PARKINSON^S DISEASE
     Dosage: REMAINED AT 16H
     Route: 050
     Dates: start: 20150204
  2. DUODOPA [Suspect]
     Active Substance: CARBIDOPA\LEVODOPA

REACTIONS (4)
  - Livedo reticularis [Fatal]
  - Blood pressure systolic abnormal [Unknown]
  - Loss of consciousness [Fatal]
  - Suspected COVID-19 [Fatal]

NARRATIVE: CASE EVENT DATE: 202004
